FAERS Safety Report 4593839-3 (Version None)
Quarter: 2005Q1

REPORT INFORMATION
  Report Type: 
  Country: None (occurrence: None)
  Receive Date: 20050301
  Receipt Date: 20050204
  Transmission Date: 20050727
  Serious: Yes (Disabling, Other)
  Sender: FDA-Public Use
  Company Number: PHBS2005NL01942

PATIENT
  Age: 67 Year
  Sex: Male

DRUGS (9)
  1. GLEEVEC [Suspect]
     Dosage: 400 MG/D
     Route: 048
     Dates: end: 20041006
  2. GLEEVEC [Suspect]
     Dosage: 600 MG/D
     Route: 048
     Dates: start: 20041007
  3. ASCAL [Concomitant]
     Dosage: 100 MG/D
     Route: 048
  4. PLAVIX [Concomitant]
     Dosage: 75 MG/D
     Route: 048
  5. NORVASC [Concomitant]
     Dosage: 5 MG/D
     Route: 048
  6. SELOKEEN ZOC [Concomitant]
     Dosage: 100 MG/D
     Route: 048
  7. MONOCEDOCARD [Concomitant]
     Dosage: 60 MG/D
     Route: 065
  8. SELEKTINE [Concomitant]
     Dosage: 40 MG/D
     Route: 065
  9. LOSEC [Concomitant]
     Dosage: 20 MG/D
     Route: 065

REACTIONS (6)
  - BLINDNESS [None]
  - IRIS VASCULAR DISORDER [None]
  - RETINAL DISORDER [None]
  - RETINAL HAEMORRHAGE [None]
  - RETINAL ISCHAEMIA [None]
  - VISUAL ACUITY REDUCED [None]
